FAERS Safety Report 10149508 (Version 1)
Quarter: 2014Q2

REPORT INFORMATION
  Report Type: Spontaneous
  Country: GB (occurrence: None)
  Receive Date: 20140430
  Receipt Date: 20140430
  Transmission Date: 20141212
  Serious: Yes (Other)
  Sender: FDA-Public Use
  Company Number: AUR-APL-2014-05098

PATIENT
  Age: 80 Year
  Sex: Female
  Weight: 66.9 kg

DRUGS (12)
  1. LISINOPRIL (LISINOPRIL) [Suspect]
     Indication: PRODUCT USED FOR UNKNOWN INDICATION
  2. ACIDEX (OMEPRAZOLE) [Concomitant]
  3. CO-CODAMOL (PANADEINE CO) [Concomitant]
  4. FUROSEMIDE (FUROSEMIDE) [Concomitant]
  5. GLICLAZIDE (GLICLAZIDE) [Concomitant]
  6. INSTILLAGEL (XYLOCAINE JELLY IWTH HIBITANE) [Concomitant]
  7. LAXIDO (ELECTROLYTES NOS W/MACROGOL 3350) [Concomitant]
  8. LEVOTHYROXINE (LEVOTHYROXINE) [Concomitant]
  9. METFORMIN (METFORMIN) [Concomitant]
  10. NITROFURANTOIN (NITROFURANTOIN) [Concomitant]
  11. OMEPRAZOLE (OMEPRAZOLE) [Concomitant]
  12. SIMVASTATIN (SIMVASTATIN) [Concomitant]

REACTIONS (1)
  - Glomerular filtration rate decreased [None]
